FAERS Safety Report 22602163 (Version 1)
Quarter: 2023Q2

REPORT INFORMATION
  Report Type: Spontaneous
  Country: GB (occurrence: GB)
  Receive Date: 20230614
  Receipt Date: 20230614
  Transmission Date: 20230721
  Serious: Yes (Hospitalization, Disabling, Other)
  Sender: FDA-Public Use
  Company Number: GB-CELGENE-GBR-20211202750

PATIENT
  Age: 73 Year
  Sex: Female
  Weight: 66.8 kg

DRUGS (21)
  1. AZACITIDINE [Suspect]
     Active Substance: AZACITIDINE
     Indication: Myelodysplastic syndrome
     Dosage: 75 MILLIGRAM/SQ. METER (7 DAYS WITHIN THE FIRST 9 CALENDAR DAYS OF EACH 28-DAY CYCLE)
     Route: 065
     Dates: start: 20211011, end: 20211116
  2. VENETOCLAX [Suspect]
     Active Substance: VENETOCLAX
     Indication: Myelodysplastic syndrome
     Dosage: 37.5 MILLIGRAM/SQ. METER
     Route: 065
     Dates: start: 20211011, end: 20211121
  3. ALLOPURINOL [Concomitant]
     Active Substance: ALLOPURINOL
     Indication: Prophylaxis
     Dosage: 300 MILLIGRAM, QD, (400 MG)
     Route: 065
     Dates: start: 20211011, end: 20220115
  4. ASPIRIN [Concomitant]
     Active Substance: ASPIRIN
     Indication: Hypercholesterolaemia
     Dosage: 75 MILLIGRAM, QD (AS NECESSARY)
     Route: 065
     Dates: start: 20170424, end: 20211201
  5. COLCHICINE [Concomitant]
     Active Substance: COLCHICINE
     Indication: Gout
     Dosage: 500 MILLIGRAM, TID (TIME INTERVAL: 0.33 D)
     Route: 065
     Dates: start: 20211125, end: 20211129
  6. CYCLIZINE [Concomitant]
     Active Substance: CYCLIZINE
     Indication: Illness
     Dosage: 50 MILLIGRAM (AS NECESSARY) START DATE UNKNOWN DATE IN 2021
     Route: 065
  7. FLUCLOXACILLIN [Concomitant]
     Active Substance: FLUCLOXACILLIN
     Indication: Gout
     Dosage: 500 MILLIGRAM, QID (4 IN 1 D; TIME INTERVAL: 0.25 D)
     Route: 065
     Dates: start: 20211125, end: 20211126
  8. FLUCLOXACILLIN [Concomitant]
     Active Substance: FLUCLOXACILLIN
     Indication: Localised infection
  9. FLUCONAZOLE [Concomitant]
     Active Substance: FLUCONAZOLE
     Indication: Prophylaxis
     Dosage: 400 MILLIGRAM (FREQUENCY TEXT: NOT PROVIDED)
     Route: 065
     Dates: start: 20211011
  10. GLICLAZIDE [Concomitant]
     Active Substance: GLICLAZIDE
     Indication: Diabetes mellitus
     Dosage: 1 DOSAGE FORM, QD (1 IN 1 D)
     Route: 065
  11. GLICLAZIDE [Concomitant]
     Active Substance: GLICLAZIDE
     Dosage: 800 MILLIGRAM, QD START DATE: 19-DEC-2021
     Route: 065
  12. GLUCOPHAGE [Concomitant]
     Active Substance: METFORMIN HYDROCHLORIDE
     Indication: Diabetes mellitus
     Dosage: 750 MILLIGRAM, BID (AS NECESSARY)
     Route: 065
     Dates: start: 20180103, end: 20211213
  13. MAGNESIUM [Concomitant]
     Active Substance: MAGNESIUM
     Indication: Hypomagnesaemia
     Dosage: UNK, QD
     Route: 065
     Dates: start: 20211011
  14. MORPHINE [Concomitant]
     Active Substance: MORPHINE
     Indication: Pain
     Dosage: 5 MILLIGRAM, QD, START DATE: 06-DEC-2021
     Route: 065
  15. NITROFURANTOIN [Concomitant]
     Active Substance: NITROFURANTOIN
     Indication: Prophylaxis urinary tract infection
     Dosage: 50 MILLIGRAM, QD, START DATE: UNKNOWN DATE IN 2021
     Route: 065
  16. ONDANSETRON [Concomitant]
     Active Substance: ONDANSETRON
     Indication: Nausea
     Dosage: 4 MILLIGRAM (AS NECESSARY), START DATE: UNKNOWN DATE IN 2021
     Route: 065
  17. PIPERACILLIN SODIUM [Concomitant]
     Active Substance: PIPERACILLIN SODIUM
     Indication: Product used for unknown indication
     Dosage: 4.5 MILLIGRAM, QID (TIME INTERVAL: 0.25 D) START DATE: 15-DEC-2021
     Route: 065
  18. RAMIPRIL [Concomitant]
     Active Substance: RAMIPRIL
     Indication: Hypertension
     Dosage: 1.25 MILLIGRAM, QD (1 IN 1 D)
     Route: 065
     Dates: start: 2010
  19. RAMIPRIL [Concomitant]
     Active Substance: RAMIPRIL
     Dosage: 1 DOSAGE FORM, QD (1 IN 1 D)
     Route: 065
  20. SIMVASTATIN [Concomitant]
     Active Substance: SIMVASTATIN
     Indication: Hypercholesterolaemia
     Dosage: 40 MILLIGRAM, QD (1 IN 1 D)
     Route: 065
  21. SIMVASTATIN [Concomitant]
     Active Substance: SIMVASTATIN
     Dosage: 1 DOSAGE FORM, QD (1 IN 1 D)
     Route: 065

REACTIONS (2)
  - Gouty tophus [Recovered/Resolved]
  - Localised infection [Recovered/Resolved]

NARRATIVE: CASE EVENT DATE: 20211126
